FAERS Safety Report 22628225 (Version 3)
Quarter: 2023Q2

REPORT INFORMATION
  Report Type: Spontaneous
  Country: JP (occurrence: JP)
  Receive Date: 20230622
  Receipt Date: 20230626
  Transmission Date: 20230721
  Serious: Yes (Other)
  Sender: FDA-Public Use
  Company Number: JP-ASTRAZENECA-202033986_013120_P_1

PATIENT
  Age: 54 Year
  Sex: Male
  Weight: 76 kg

DRUGS (8)
  1. OPDIVO [Suspect]
     Active Substance: NIVOLUMAB
     Indication: Non-small cell lung cancer
     Dates: start: 20210513, end: 20210624
  2. OPDIVO [Suspect]
     Active Substance: NIVOLUMAB
     Dates: start: 20211118
  3. YERVOY [Suspect]
     Active Substance: IPILIMUMAB
     Indication: Non-small cell lung cancer
     Dates: start: 20210513, end: 20210624
  4. YERVOY [Suspect]
     Active Substance: IPILIMUMAB
     Dates: start: 20211118
  5. IMFINZI [Suspect]
     Active Substance: DURVALUMAB
     Indication: Non-small cell lung cancer
     Route: 041
     Dates: start: 20200706
  6. IMFINZI [Suspect]
     Active Substance: DURVALUMAB
     Route: 041
     Dates: start: 20200917, end: 20210218
  7. CISPLATIN [Concomitant]
     Active Substance: CISPLATIN
     Indication: Non-small cell lung cancer
     Dates: start: 20200511, end: 20200622
  8. CISPLATIN [Concomitant]
     Active Substance: CISPLATIN
     Dates: start: 20200511, end: 20200620

REACTIONS (1)
  - Radiation pneumonitis [Recovered/Resolved]

NARRATIVE: CASE EVENT DATE: 20200720
